FAERS Safety Report 15523043 (Version 1)
Quarter: 2018Q4

REPORT INFORMATION
  Report Type: Spontaneous
  Country: US (occurrence: US)
  Receive Date: 20181019
  Receipt Date: 20181019
  Transmission Date: 20190205
  Serious: Yes (Disabling)
  Sender: FDA-Public Use
  Company Number: None

PATIENT
  Age: 40 Year
  Sex: Female
  Weight: 58.95 kg

DRUGS (1)
  1. QBREXZA [Suspect]
     Active Substance: GLYCOPYRRONIUM TOSYLATE
     Indication: HYPERHIDROSIS
     Dosage: ?          QUANTITY:1 CLOTH;?
     Route: 061
     Dates: start: 20181016, end: 20181018

REACTIONS (3)
  - Vision blurred [None]
  - Mydriasis [None]
  - Dry mouth [None]

NARRATIVE: CASE EVENT DATE: 20181018
